FAERS Safety Report 13910538 (Version 1)
Quarter: 2017Q3

REPORT INFORMATION
  Report Type: Spontaneous
  Country: US (occurrence: US)
  Receive Date: 20170826
  Receipt Date: 20170826
  Transmission Date: 20171127
  Serious: No
  Sender: FDA-Public Use
  Company Number: None

PATIENT
  Age: 50 Year
  Sex: Male
  Weight: 126 kg

DRUGS (6)
  1. ATORVASTATIN [Concomitant]
     Active Substance: ATORVASTATIN
  2. DIINDOLYLMETHANE [Concomitant]
     Active Substance: 3,3^-DIINDOLYLMETHANE
  3. BIOTE MEDICAL TESTOSTERONE [Suspect]
     Active Substance: TESTOSTERONE
     Indication: BLOOD TESTOSTERONE DECREASED
     Dosage: ?          QUANTITY:12 PELLETS;OTHER FREQUENCY:4-6 MONTHS;?
     Route: 058
     Dates: start: 20170728
  4. LISINOPRIL. [Concomitant]
     Active Substance: LISINOPRIL
  5. VITAMJIN D3 [Concomitant]
  6. BABY ASPIRIN [Concomitant]
     Active Substance: ASPIRIN

REACTIONS (6)
  - Hypoaesthesia [None]
  - Ventricular extrasystoles [None]
  - Heart rate increased [None]
  - Chest discomfort [None]
  - Condition aggravated [None]
  - Blood pressure increased [None]

NARRATIVE: CASE EVENT DATE: 20170825
